FAERS Safety Report 4378071-0 (Version None)
Quarter: 2004Q2

REPORT INFORMATION
  Report Type: 
  Country: None (occurrence: None)
  Receive Date: 20040616
  Receipt Date: 20040609
  Transmission Date: 20050107
  Serious: Yes (Hospitalization)
  Sender: FDA-Public Use
  Company Number: GB-BRISTOL-MYERS SQUIBB COMPANY-12608816

PATIENT
  Age: 33 Year
  Sex: Female
  Weight: 109 kg

DRUGS (2)
  1. PACLITAXEL [Suspect]
     Indication: BREAST CANCER
     Dosage: CYCLE 4 ADMINISTERED ON 14-APR-2004
     Route: 042
  2. GEMCITABINE [Suspect]
     Indication: BREAST CANCER
     Dosage: CYCLE 4 ADMINISTERED ON 21-APR-2004
     Route: 042

REACTIONS (1)
  - CAT SCRATCH DISEASE [None]
